FAERS Safety Report 4429394-8 (Version None)
Quarter: 2004Q3

REPORT INFORMATION
  Report Type: 
  Country: None (occurrence: None)
  Receive Date: 20040817
  Receipt Date: 20040817
  Transmission Date: 20050211
  Serious: Yes (Hospitalization)
  Sender: FDA-Public Use
  Company Number: None

PATIENT
  Age: 37 Year
  Sex: Male
  Weight: 100 kg

DRUGS (4)
  1. LITHIUM CARBONATE CAP [Suspect]
     Indication: BIPOLAR DISORDER
     Dosage: 600 MG PO BID
     Route: 048
     Dates: start: 19950501, end: 20040801
  2. LITHIUM CARBONATE CAP [Suspect]
     Indication: SCHIZOAFFECTIVE DISORDER
     Dosage: 600 MG PO BID
     Route: 048
     Dates: start: 19950501, end: 20040801
  3. CLONAZEPAM [Concomitant]
  4. OLANZAPINE [Concomitant]
     Dosage: PATIENT WAS NOT TAKING

REACTIONS (3)
  - ABNORMAL BEHAVIOUR [None]
  - CONFUSIONAL STATE [None]
  - DRUG LEVEL INCREASED [None]
